FAERS Safety Report 4465372-0 (Version None)
Quarter: 2004Q3

REPORT INFORMATION
  Report Type: 
  Country: None (occurrence: None)
  Receive Date: 20040929
  Receipt Date: 20040910
  Transmission Date: 20050211
  Serious: Yes (Hospitalization, Other)
  Sender: FDA-Public Use
  Company Number: US_030695355

PATIENT
  Age: 83 Year
  Sex: Female
  Weight: 61 kg

DRUGS (10)
  1. FORTEO [Suspect]
     Indication: OSTEOPOROSIS
     Dosage: 20 UG/1 DAY
     Dates: start: 20030603
  2. ACTONEL [Concomitant]
  3. FOSAMAX [Concomitant]
  4. MAXZIDE [Concomitant]
  5. ZOLOFT [Concomitant]
  6. PRILOSEC [Concomitant]
  7. OSCAL [Concomitant]
  8. COUMADIN [Concomitant]
  9. ULTRACET [Concomitant]
  10. VITAMIN CAP [Concomitant]

REACTIONS (8)
  - CONTUSION [None]
  - DEHYDRATION [None]
  - FALL [None]
  - INJECTION SITE BURNING [None]
  - LACERATION [None]
  - OEDEMA PERIPHERAL [None]
  - PHARMACEUTICAL PRODUCT COMPLAINT [None]
  - RHABDOMYOLYSIS [None]
